FAERS Safety Report 8696718 (Version 12)
Quarter: 2015Q1

REPORT INFORMATION
  Report Type: Report from Study
  Country: PL (occurrence: PL)
  Receive Date: 20120801
  Receipt Date: 20150310
  Transmission Date: 20150721
  Serious: Yes (Life-Threatening, Other)
  Sender: FDA-Public Use
  Company Number: PL-ROCHE-1074096

PATIENT
  Age: 40 Year
  Sex: Female
  Weight: 48.5 kg

DRUGS (4)
  1. VEMURAFENIB [Suspect]
     Active Substance: VEMURAFENIB
     Route: 048
     Dates: start: 20120729
  2. VEMURAFENIB [Suspect]
     Active Substance: VEMURAFENIB
     Dosage: DOSE REDUCED, LAST DOSE PRIOR TO SAE SECOND PRIMARY MELANOMA ON: 28/MAY/2012, LAST DOSE PRIOR TO SAE
     Route: 048
     Dates: start: 20120508, end: 20120724
  3. VEMURAFENIB [Suspect]
     Active Substance: VEMURAFENIB
     Indication: METASTATIC MALIGNANT MELANOMA
     Dosage: LAST DOSE PRIOR TO THE EVENT: SAE ON 02/APR/2012. LAST DOSE PRIOR TO ANEMIA ON 03/APR/2012.
     Route: 048
     Dates: start: 20120207
  4. VEMURAFENIB [Suspect]
     Active Substance: VEMURAFENIB
     Dosage: LAST DOSE PRIOR TO THE EVENT: SAE ON 30/APR/2012. LAST DOSE PRIOR TO ANEMIA ON 07/MAY/2012.
     Route: 048
     Dates: start: 20120410

REACTIONS (2)
  - Malignant melanoma [Recovered/Resolved]
  - Anaemia [Recovered/Resolved]

NARRATIVE: CASE EVENT DATE: 20120529
